FAERS Safety Report 19439433 (Version 1)
Quarter: 2021Q2

REPORT INFORMATION
  Report Type: Spontaneous
  Country: US (occurrence: US)
  Receive Date: 20210618
  Receipt Date: 20210618
  Transmission Date: 20210717
  Serious: Yes (Disabling, Other)
  Sender: FDA-Public Use
  Company Number: US-INSUD PHARMA-2106US00624

PATIENT

DRUGS (1)
  1. TRI?ESTARYLLA [Suspect]
     Active Substance: ETHINYL ESTRADIOL\NORGESTIMATE
     Indication: PRODUCT USED FOR UNKNOWN INDICATION
     Dosage: TOOK RELIGIOUSLY AND PRECISELY AS DIRECTED
     Route: 048
     Dates: start: 2021

REACTIONS (6)
  - Emotional distress [Unknown]
  - Condition aggravated [Unknown]
  - Depression [Unknown]
  - Pregnancy on oral contraceptive [Unknown]
  - Drug ineffective [Unknown]
  - Immune system disorder [Unknown]

NARRATIVE: CASE EVENT DATE: 2021
